FAERS Safety Report 23744361 (Version 1)
Quarter: 2024Q2

REPORT INFORMATION
  Report Type: Spontaneous
  Country: US (occurrence: US)
  Receive Date: 20240415
  Receipt Date: 20240415
  Transmission Date: 20240715
  Serious: No
  Sender: FDA-Public Use
  Company Number: US-SA-SAC20240408000525

PATIENT
  Sex: Male

DRUGS (4)
  1. AUBAGIO [Suspect]
     Active Substance: TERIFLUNOMIDE
     Indication: Multiple sclerosis
     Dosage: UNK
     Route: 048
  2. LISINOPRIL [Suspect]
     Active Substance: LISINOPRIL
     Dosage: UNK
  3. DIMENHYDRINATE [Suspect]
     Active Substance: DIMENHYDRINATE
     Dosage: UNK
  4. VUMERITY [Suspect]
     Active Substance: DIROXIMEL FUMARATE
     Dosage: UNK

REACTIONS (8)
  - Flushing [Recovered/Resolved]
  - Facial pain [Not Recovered/Not Resolved]
  - Oedema [Unknown]
  - Swelling face [Unknown]
  - Feeling abnormal [Unknown]
  - Tooth disorder [Unknown]
  - Paraesthesia [Unknown]
  - Hypertension [Not Recovered/Not Resolved]
